FAERS Safety Report 15673857 (Version 1)
Quarter: 2018Q4

REPORT INFORMATION
  Report Type: Spontaneous
  Country: US (occurrence: US)
  Receive Date: 20181129
  Receipt Date: 20181129
  Transmission Date: 20190205
  Serious: Yes (Other)
  Sender: FDA-Public Use
  Company Number: US-PFIZER INC-2018396334

PATIENT
  Age: 66 Year
  Sex: Female
  Weight: 103.42 kg

DRUGS (1)
  1. PREMARIN [Suspect]
     Active Substance: ESTROGENS, CONJUGATED
     Dosage: UNK

REACTIONS (6)
  - Spinal disorder [Unknown]
  - Pain [Unknown]
  - Spinal cord injury [Unknown]
  - Headache [Unknown]
  - Pelvic fracture [Unknown]
  - Intervertebral disc protrusion [Unknown]
